FAERS Safety Report 6772772-2 (Version None)
Quarter: 2010Q2

REPORT INFORMATION
  Report Type: 
  Country: None (occurrence: None)
  Receive Date: 20100616
  Receipt Date: 20100614
  Transmission Date: 20101027
  Serious: Yes (Life-Threatening, Hospitalization)
  Sender: FDA-Public Use
  Company Number: FR-BRISTOL-MYERS SQUIBB COMPANY-15065519

PATIENT
  Age: 44 Year
  Sex: Male

DRUGS (3)
  1. ABILIFY [Suspect]
     Indication: BIPOLAR DISORDER
     Dosage: 05MAY08-11JUN08(15MG;11JUN08-25JUN08(5MG);25JUN08-10MG;THEN TO 7.5MG IN UNK-JUN09.
     Route: 048
     Dates: start: 20080505
  2. DEPAKOTE [Concomitant]
     Indication: BIPOLAR DISORDER
     Dosage: DEPAKOTE 500 TABLETS, 750MG TABS
     Route: 048
  3. EFFEXOR [Concomitant]
     Indication: BIPOLAR DISORDER
     Dosage: TABLETS
     Route: 048

REACTIONS (2)
  - MALIGNANT HYPERTENSION [None]
  - TRANSIENT ISCHAEMIC ATTACK [None]
